FAERS Safety Report 25473938 (Version 5)
Quarter: 2025Q3

REPORT INFORMATION
  Report Type: Report from Study
  Country: US (occurrence: US)
  Receive Date: 20250624
  Receipt Date: 20250923
  Transmission Date: 20251021
  Serious: Yes (Other)
  Sender: ABBVIE
  Company Number: US-ABBVIE-6273949

PATIENT
  Age: 60 Year
  Sex: Female
  Weight: 75 kg

DRUGS (2)
  1. RINVOQ [Suspect]
     Active Substance: UPADACITINIB
     Indication: Ankylosing spondylitis
     Dosage: FORM STRENGTH: 15 MILLIGRAM
     Route: 048
     Dates: start: 202505, end: 20250724
  2. RINVOQ [Suspect]
     Active Substance: UPADACITINIB
     Indication: Ankylosing spondylitis
     Dosage: FORM STRENGTH: 15 MILLIGRAM
     Route: 048
     Dates: start: 20250321, end: 202504

REACTIONS (24)
  - Sacroiliac fracture [Recovering/Resolving]
  - Hot flush [Not Recovered/Not Resolved]
  - Muscle spasms [Recovering/Resolving]
  - Drug ineffective [Not Recovered/Not Resolved]
  - Night sweats [Not Recovered/Not Resolved]
  - Discomfort [Recovered/Resolved with Sequelae]
  - Oral herpes [Recovered/Resolved]
  - Sacroiliac joint dysfunction [Not Recovered/Not Resolved]
  - Sacral pain [Recovering/Resolving]
  - Gait inability [Not Recovered/Not Resolved]
  - Arthralgia [Unknown]
  - Fatigue [Recovered/Resolved]
  - Joint swelling [Unknown]
  - Musculoskeletal stiffness [Not Recovered/Not Resolved]
  - COVID-19 [Recovered/Resolved]
  - Pain in extremity [Recovering/Resolving]
  - Arthropod sting [Recovering/Resolving]
  - Back pain [Recovering/Resolving]
  - Balance disorder [Recovered/Resolved]
  - Weight increased [Unknown]
  - Pain [Recovered/Resolved]
  - Lethargy [Unknown]
  - Asthenia [Unknown]
  - Restless legs syndrome [Unknown]

NARRATIVE: CASE EVENT DATE: 20250101
